FAERS Safety Report 4621376-6 (Version None)
Quarter: 2005Q1

REPORT INFORMATION
  Report Type: 
  Country: None (occurrence: None)
  Receive Date: 20050325
  Receipt Date: 20050302
  Transmission Date: 20050727
  Serious: Yes (Hospitalization)
  Sender: FDA-Public Use
  Company Number: 2005-BP-03691MX

PATIENT
  Age: 63 Year
  Sex: Male

DRUGS (2)
  1. SECOTEX CAPSULES 0.4MG (KA) (TAMSULOSIN HYDROCHLORIDE) [Suspect]
     Indication: BENIGN PROSTATIC HYPERPLASIA
     Dosage: 0.4 MG (0.4 MG, 1 KA OD) PO
     Route: 048
     Dates: start: 20030920, end: 20031020
  2. SECOTEX CAPSULES 0.4MG (KA) (TAMSULOSIN HYDROCHLORIDE) [Suspect]
     Indication: PROSTATIC OBSTRUCTION
     Dosage: 0.4 MG (0.4 MG, 1 KA OD) PO
     Route: 048
     Dates: start: 20030920, end: 20031020

REACTIONS (2)
  - DRUG INEFFECTIVE [None]
  - TRANSURETHRAL PROSTATECTOMY [None]
